FAERS Safety Report 8255608-2 (Version None)
Quarter: 2012Q2

REPORT INFORMATION
  Report Type: 
  Country: None (occurrence: None)
  Receive Date: 20120403
  Receipt Date: 20120328
  Transmission Date: 20120825
  Serious: Yes (Other)
  Sender: FDA-Public Use
  Company Number: PHEH2012US006860

PATIENT
  Sex: Male

DRUGS (3)
  1. CHANTIX [Suspect]
     Dosage: UNK
  2. DIOVAN [Suspect]
     Dosage: 320 MG, QD
  3. ACCUPRIL [Concomitant]
     Dosage: UNK

REACTIONS (1)
  - RENAL ANEURYSM [None]
